FAERS Safety Report 6609177-0 (Version None)
Quarter: 2010Q1

REPORT INFORMATION
  Report Type: 
  Country: None (occurrence: None)
  Receive Date: 20100301
  Receipt Date: 20100221
  Transmission Date: 20100710
  Serious: Yes (Other)
  Sender: FDA-Public Use
  Company Number: US-AMGEN-QUU394064

PATIENT
  Sex: Male

DRUGS (2)
  1. NEULASTA [Suspect]
     Indication: CHEMOTHERAPY
     Route: 065
     Dates: start: 20100217, end: 20100217
  2. UNSPECIFIED ANTINEOPLASTIC AGENT [Concomitant]
     Dates: start: 20100215, end: 20100216

REACTIONS (3)
  - CHEST PAIN [None]
  - DYSPNOEA [None]
  - PAIN IN JAW [None]
